FAERS Safety Report 6812133-0 (Version None)
Quarter: 2010Q3

REPORT INFORMATION
  Report Type: 
  Country: None (occurrence: None)
  Receive Date: 20100701
  Receipt Date: 20090806
  Transmission Date: 20110219
  Serious: No
  Sender: FDA-Public Use
  Company Number: US-ABBOTT-09P-163-0590107-00

PATIENT
  Sex: Male
  Weight: 70.824 kg

DRUGS (3)
  1. NORVIR [Suspect]
     Indication: HIV INFECTION
  2. ADVAIR DISKUS 100/50 [Interacting]
     Indication: ASTHMA
  3. FLUTICASONE [Interacting]
     Indication: ASTHMA

REACTIONS (3)
  - ADRENAL SUPPRESSION [None]
  - CUSHINGOID [None]
  - DRUG INTERACTION [None]
